FAERS Safety Report 22905089 (Version 5)
Quarter: 2023Q4

REPORT INFORMATION
  Report Type: Report from Study
  Country: US (occurrence: US)
  Receive Date: 20230905
  Receipt Date: 20231210
  Transmission Date: 20240110
  Serious: Yes (Other)
  Sender: FDA-Public Use
  Company Number: US-ACADIA PHARMACEUTICALS INC.-ACA-2023-TRF-003480

PATIENT
  Sex: Male

DRUGS (15)
  1. DAYBUE [Suspect]
     Active Substance: TROFINETIDE
     Indication: Rett syndrome
     Dosage: 60 MILLILITER, BID VIA G-TUBE
     Dates: start: 20230601
  2. DAYBUE [Suspect]
     Active Substance: TROFINETIDE
     Dosage: 35 MILLILITER, BID VIA G-TUBE
  3. DAYBUE [Suspect]
     Active Substance: TROFINETIDE
     Dosage: 60 MILLILITER, BID VIA G-TUBE
  4. VIMPAT [Concomitant]
     Active Substance: LACOSAMIDE
  5. KEPPRA [Concomitant]
     Active Substance: LEVETIRACETAM
  6. DIGOXIN [Concomitant]
     Active Substance: DIGOXIN
  7. OMEPRAZOLE [Concomitant]
     Active Substance: OMEPRAZOLE
     Dosage: DR
  8. VITAMIN D3 [Concomitant]
     Active Substance: CHOLECALCIFEROL
  9. CULTURELLE [Concomitant]
     Active Substance: LACTOBACILLUS RHAMNOSUS
  10. SYMBICORT [Concomitant]
     Active Substance: BUDESONIDE\FORMOTEROL FUMARATE DIHYDRATE
  11. LORAZEPAM [Concomitant]
     Active Substance: LORAZEPAM
     Dosage: INTENSOL CONCENTRATE
  12. INFANTS TYLENOL [Concomitant]
     Active Substance: ACETAMINOPHEN
  13. CHILDRENS IBUPROFEN [Concomitant]
     Active Substance: IBUPROFEN
  14. SODIUM CHLORIDE [Concomitant]
     Active Substance: SODIUM CHLORIDE
     Dosage: NEBULIZER SOLUTION
  15. LEVALBUTEROL [Concomitant]
     Active Substance: LEVALBUTEROL
     Dosage: NEBULIZER SOLUTION

REACTIONS (8)
  - Erosive oesophagitis [Unknown]
  - Oesophageal haemorrhage [Unknown]
  - Seizure [Not Recovered/Not Resolved]
  - Gastrooesophageal reflux disease [Unknown]
  - Underdose [Unknown]
  - Diarrhoea [Not Recovered/Not Resolved]
  - Diarrhoea [Not Recovered/Not Resolved]
  - Diarrhoea [Not Recovered/Not Resolved]
